FAERS Safety Report 7964556-4 (Version None)
Quarter: 2011Q4

REPORT INFORMATION
  Report Type: 
  Country: None (occurrence: None)
  Receive Date: 20111208
  Receipt Date: 20111130
  Transmission Date: 20120403
  Serious: Yes (Hospitalization)
  Sender: FDA-Public Use
  Company Number: PHEH2011US010215

PATIENT
  Sex: Male

DRUGS (1)
  1. NEORAL [Suspect]
     Indication: HEART TRANSPLANT
     Dosage: UNK UKN, UNK
     Route: 048
     Dates: start: 19980101

REACTIONS (3)
  - FALL [None]
  - DIZZINESS [None]
  - LACERATION [None]
